FAERS Safety Report 4293297-2 (Version None)
Quarter: 2004Q1

REPORT INFORMATION
  Report Type: 
  Country: None (occurrence: None)
  Receive Date: 20040209
  Receipt Date: 20030429
  Transmission Date: 20041129
  Serious: Yes (Other)
  Sender: FDA-Public Use
  Company Number: WAES 0305USA00015

PATIENT
  Sex: Male

DRUGS (1)
  1. TAB CORTONE [Suspect]
     Indication: INFLAMMATION LOCALISED
     Dosage: PO
     Route: 048

REACTIONS (1)
  - ASEPTIC NECROSIS BONE [None]
